FAERS Safety Report 9540169 (Version 3)
Quarter: 2013Q4

REPORT INFORMATION
  Report Type: Spontaneous
  Country: US (occurrence: US)
  Receive Date: 20130920
  Receipt Date: 20131007
  Transmission Date: 20140711
  Serious: Yes (Hospitalization)
  Sender: FDA-Public Use
  Company Number: US-US-EMD SERONO, INC.-7111160

PATIENT
  Age: 47 Year
  Sex: Female
  Weight: 91 kg

DRUGS (1)
  1. REBIF [Suspect]
     Indication: RELAPSING-REMITTING MULTIPLE SCLEROSIS
     Route: 058
     Dates: start: 20091203

REACTIONS (8)
  - Injection site infection [Recovered/Resolved]
  - Injection site cellulitis [Recovered/Resolved]
  - Thinking abnormal [Unknown]
  - Anger [Unknown]
  - Cognitive disorder [Unknown]
  - Fatigue [Unknown]
  - Injection site erythema [Recovered/Resolved]
  - Injection site warmth [Recovered/Resolved]
